FAERS Safety Report 25720219 (Version 1)
Quarter: 2025Q3

REPORT INFORMATION
  Report Type: Spontaneous
  Country: US (occurrence: US)
  Receive Date: 20250825
  Receipt Date: 20250825
  Transmission Date: 20251021
  Serious: No
  Sender: WAYLIS THERAPEUTICS LLC
  Company Number: US-WT-2025-10000349412

PATIENT
  Age: 42 Year
  Sex: Female

DRUGS (1)
  1. LUNESTA [Suspect]
     Active Substance: ESZOPICLONE
     Route: 065
     Dates: start: 082112

REACTIONS (1)
  - Drug ineffective [Unknown]
